FAERS Safety Report 5288680-2 (Version None)
Quarter: 2007Q2

REPORT INFORMATION
  Report Type: 
  Country: None (occurrence: None)
  Receive Date: 20070405
  Receipt Date: 20070326
  Transmission Date: 20071010
  Serious: Yes (Hospitalization)
  Sender: FDA-Public Use
  Company Number: FR-ROCHE-489731

PATIENT
  Age: 14 Year
  Sex: Female
  Weight: 34 kg

DRUGS (3)
  1. ROCEPHIN [Suspect]
     Indication: DRUG USE FOR UNKNOWN INDICATION
     Route: 065
     Dates: start: 20061201, end: 20061206
  2. ROCEPHIN [Suspect]
     Route: 065
     Dates: start: 20061126, end: 20061128
  3. AMIKLIN [Concomitant]
     Dosage: THERAPY FROM 26 NOV 2006 TO 27 NOV 2006 AND FROM 01 DEC 2006 TO 03 DEC 2006.
     Dates: start: 20061126, end: 20061203

REACTIONS (1)
  - PANCREATITIS [None]
